FAERS Safety Report 6671474-0 (Version None)
Quarter: 2010Q2

REPORT INFORMATION
  Report Type: 
  Country: None (occurrence: None)
  Receive Date: 20100407
  Receipt Date: 20100402
  Transmission Date: 20101027
  Serious: Yes (Life-Threatening, Hospitalization, Disabling, Other)
  Sender: FDA-Public Use
  Company Number: US-MERCK-1004USA00296

PATIENT
  Age: 17 Year
  Sex: Male

DRUGS (6)
  1. SINGULAIR [Suspect]
     Indication: ASTHMA
     Route: 048
     Dates: start: 20040101, end: 20050101
  2. SINGULAIR [Suspect]
     Route: 048
     Dates: start: 20050101
  3. SINGULAIR [Suspect]
     Indication: HYPERSENSITIVITY
     Route: 048
     Dates: start: 20040101, end: 20050101
  4. SINGULAIR [Suspect]
     Route: 048
     Dates: start: 20050101
  5. FLONASE [Concomitant]
     Route: 065
  6. SUDAFED 12 HOUR [Concomitant]
     Route: 065

REACTIONS (2)
  - DEPRESSION [None]
  - SUICIDAL IDEATION [None]
